FAERS Safety Report 7389707-4 (Version None)
Quarter: 2011Q2

REPORT INFORMATION
  Report Type: 
  Country: None (occurrence: None)
  Receive Date: 20110401
  Receipt Date: 20110323
  Transmission Date: 20111010
  Serious: Yes (Hospitalization, Other)
  Sender: FDA-Public Use
  Company Number: JP-MERCK-1103USA03515

PATIENT
  Age: 51 Year
  Sex: Female
  Weight: 35 kg

DRUGS (5)
  1. STROMECTOL [Suspect]
     Indication: ACARODERMATITIS
     Route: 048
     Dates: start: 20110216, end: 20110216
  2. ALESION [Concomitant]
     Indication: HYPERSENSITIVITY
     Route: 048
  3. MAGMITT [Concomitant]
     Indication: CONSTIPATION
     Route: 048
  4. SENNOSIDES [Concomitant]
     Indication: CONSTIPATION
     Route: 048
  5. STROMECTOL [Suspect]
     Route: 048
     Dates: start: 20110223, end: 20110223

REACTIONS (4)
  - WEIGHT DECREASED [None]
  - ILEUS [None]
  - OVERDOSE [None]
  - WHITE BLOOD CELL COUNT DECREASED [None]
